FAERS Safety Report 10666398 (Version 2)
Quarter: 2014Q4

REPORT INFORMATION
  Report Type: Spontaneous
  Country: US (occurrence: US)
  Receive Date: 20141220
  Receipt Date: 20141220
  Transmission Date: 20150529
  Serious: No
  Sender: FDA-Public Use
  Company Number: US-BAUSCH-SYM-2014-19363

PATIENT
  Sex: Male

DRUGS (3)
  1. XENAZINE [Suspect]
     Active Substance: TETRABENAZINE
     Dosage: 1 TABLET, 3 TIMES DAILY
     Route: 048
     Dates: start: 2014, end: 2014
  2. XENAZINE [Suspect]
     Active Substance: TETRABENAZINE
     Indication: HUNTINGTON^S DISEASE
     Dosage: 1 TABLET, TWICE DAILY
     Route: 048
     Dates: start: 20140319, end: 2014
  3. XENAZINE [Suspect]
     Active Substance: TETRABENAZINE
     Dosage: 1 TABLET EVERY 10 HOURS
     Route: 048
     Dates: start: 2014

REACTIONS (8)
  - Lethargy [Recovering/Resolving]
  - Faecal incontinence [Unknown]
  - Depression [Recovering/Resolving]
  - Nausea [Unknown]
  - Staring [Unknown]
  - Wrong technique in drug usage process [Unknown]
  - Dysphagia [Unknown]
  - Hypersomnia [Unknown]

NARRATIVE: CASE EVENT DATE: 2014
